FAERS Safety Report 14436485 (Version 3)
Quarter: 2018Q1

REPORT INFORMATION
  Report Type: Spontaneous
  Country: US (occurrence: US)
  Receive Date: 20180125
  Receipt Date: 20180129
  Transmission Date: 20180509
  Serious: No
  Sender: FDA-Public Use
  Company Number: US-BIOGEN-2018BI00513050

PATIENT
  Sex: Female

DRUGS (2)
  1. ZINBRYTA [Suspect]
     Active Substance: DACLIZUMAB
     Indication: RELAPSING-REMITTING MULTIPLE SCLEROSIS
     Route: 065
     Dates: start: 20180118
  2. ZINBRYTA [Suspect]
     Active Substance: DACLIZUMAB
     Route: 065

REACTIONS (5)
  - Injection site pain [Recovered/Resolved]
  - Influenza [Unknown]
  - Underdose [Unknown]
  - Gout [Unknown]
  - Nausea [Unknown]
